FAERS Safety Report 10361768 (Version 1)
Quarter: 2014Q1

REPORT INFORMATION
  Report Type: Spontaneous
  Country: US (occurrence: None)
  Receive Date: 20140306
  Receipt Date: 20140306
  Transmission Date: 20141002
  Serious: Yes (Hospitalization)
  Sender: FDA-Public Use
  Company Number: 163-21880-13080036

PATIENT
  Age: 84 Year
  Sex: Male
  Weight: 81.6 kg

DRUGS (9)
  1. REVLIMID [Suspect]
     Indication: PLASMA CELL MYELOMA
     Route: 048
     Dates: start: 201304
  2. PREDNISONE (PREDNISONE) (TABLETS) [Concomitant]
  3. COLACE (DOCUSATE SODIUM) (UNKNOWN) [Concomitant]
  4. CITRACAL PETITES/VITAMIN (CALCIUM CITRATE W/COLECALCIFEROL) (UNKNOWN) [Concomitant]
  5. HYDROCODONE W/ ACETAMINOPHEN (VICODIN) (UNKNOWN) [Concomitant]
  6. OXYBUTYNIN CHLORIDE (OXYBUTYNIN HYDROCHLORIDE) (UNKNOWN) [Concomitant]
  7. AMLODIPINE BESYLATE/BENAZEPRIL (AMLODIPINE BESYLATE W/ BENAZEPRIL) (UNKNOWN) [Concomitant]
  8. XARELTO (RIVAROXABAN) (UNKNOWN) [Concomitant]
  9. COMPLEX (BECOSYM FORTE) (UNKNOWN) [Concomitant]

REACTIONS (5)
  - Fall [None]
  - Blood pressure decreased [None]
  - Polymyalgia rheumatica [None]
  - Oedema peripheral [None]
  - Depression [None]
